FAERS Safety Report 8358425-8 (Version None)
Quarter: 2012Q2

REPORT INFORMATION
  Report Type: 
  Country: None (occurrence: None)
  Receive Date: 20120514
  Receipt Date: 20120511
  Transmission Date: 20120825
  Serious: Yes (Death)
  Sender: FDA-Public Use
  Company Number: AU-B.I. PHARMACEUTICALS,INC./RIDGEFIELD-2012-AU-00907AU

PATIENT
  Age: 88 Year
  Sex: Male
  Weight: 82 kg

DRUGS (9)
  1. COVERSYL PLUS [Concomitant]
     Dosage: 5/1.25MG DAILY
  2. FUROSEMIDE [Concomitant]
     Dosage: 40 MG
  3. PRADAXA [Suspect]
     Indication: ATRIAL FIBRILLATION
     Dosage: 220 MG
     Dates: start: 20110722
  4. ATENOLOL [Concomitant]
     Dosage: 50 MG
  5. AVAPRO [Concomitant]
     Dosage: 75 MG
  6. NIFEDIPINE [Concomitant]
     Dosage: 60 MG
  7. NEXIUM [Concomitant]
     Dosage: 40 MG
  8. METFORMIN HCL [Concomitant]
     Dosage: 1500 MG
  9. GEMFIBROZIL [Concomitant]
     Dosage: 1200 MG

REACTIONS (2)
  - MULTI-ORGAN FAILURE [None]
  - RENAL FAILURE [None]
